FAERS Safety Report 6976451-8 (Version None)
Quarter: 2010Q3

REPORT INFORMATION
  Report Type: 
  Country: None (occurrence: None)
  Receive Date: 20100910
  Receipt Date: 20100610
  Transmission Date: 20110219
  Serious: No
  Sender: FDA-Public Use
  Company Number: US-TYCO HEALTHCARE/MALLINCKRODT-T201001432

PATIENT
  Sex: Female

DRUGS (2)
  1. ACETAMINOPHEN AND HYDROCODONE BITARTRATE [Suspect]
     Indication: PAIN
     Dosage: 1 TABLET Q 8 HRS
     Dates: start: 20090101, end: 20091201
  2. ALPRAZOLAM [Suspect]
     Indication: ANXIETY
     Dosage: 1 MG, BID

REACTIONS (2)
  - DRUG LEVEL INCREASED [None]
  - SOMNOLENCE [None]
